FAERS Safety Report 8087903-4 (Version None)
Quarter: 2012Q1

REPORT INFORMATION
  Report Type: 
  Country: None (occurrence: None)
  Receive Date: 20120128
  Receipt Date: 20110610
  Transmission Date: 20120608
  Serious: No
  Sender: FDA-Public Use
  Company Number: US-ABBOTT-11P-163-0731744-00

PATIENT
  Age: 72 Year
  Sex: Female

DRUGS (6)
  1. SOMA [Concomitant]
     Indication: FIBROMYALGIA
  2. UNKNOWN MEDICATION [Concomitant]
     Indication: HYPOTHYROIDISM
  3. TRIAMTERINE [Concomitant]
     Indication: HYPERTENSION
  4. UNKNOWN MEDICATION [Concomitant]
     Indication: HORMONE REPLACEMENT THERAPY
  5. HUMIRA [Suspect]
     Indication: PSORIATIC ARTHROPATHY
     Dosage: INITIAL DOSE
     Dates: start: 20110607
  6. AMBIEN [Concomitant]
     Indication: INSOMNIA
     Dosage: AT BEDTIME

REACTIONS (2)
  - HEADACHE [None]
  - VISION BLURRED [None]
